FAERS Safety Report 14240713 (Version 2)
Quarter: 2017Q4

REPORT INFORMATION
  Report Type: Spontaneous
  Country: SK (occurrence: SK)
  Receive Date: 20171130
  Receipt Date: 20171220
  Transmission Date: 20180321
  Serious: Yes (Death)
  Sender: FDA-Public Use
  Company Number: SK-ELI_LILLY_AND_COMPANY-SK201711012429

PATIENT
  Sex: Male

DRUGS (1)
  1. ERBITUX [Suspect]
     Active Substance: CETUXIMAB
     Indication: OROPHARYNGEAL CANCER
     Dosage: 500 MG, UNKNOWN
     Route: 065
     Dates: start: 20130121, end: 20150130

REACTIONS (1)
  - Oncologic complication [Fatal]

NARRATIVE: CASE EVENT DATE: 20150526
